FAERS Safety Report 8259036-5 (Version None)
Quarter: 2012Q2

REPORT INFORMATION
  Report Type: 
  Country: None (occurrence: None)
  Receive Date: 20120404
  Receipt Date: 20120328
  Transmission Date: 20120825
  Serious: Yes (Hospitalization)
  Sender: FDA-Public Use
  Company Number: GR-JNJFOC-20120401384

PATIENT
  Age: 75 Year
  Sex: Female

DRUGS (6)
  1. CLOPIDOGREL [Suspect]
     Indication: THROMBOSIS PROPHYLAXIS
  2. CLOPIDOGREL [Suspect]
     Indication: HIP SURGERY
  3. XARELTO [Suspect]
     Indication: HIP SURGERY
     Route: 065
  4. ASPIRIN [Suspect]
     Indication: HIP SURGERY
  5. XARELTO [Suspect]
     Indication: THROMBOSIS PROPHYLAXIS
     Route: 065
  6. ASPIRIN [Suspect]
     Indication: THROMBOSIS PROPHYLAXIS

REACTIONS (1)
  - DEEP VEIN THROMBOSIS [None]
